FAERS Safety Report 5677812-X (Version None)
Quarter: 2008Q1

REPORT INFORMATION
  Report Type: 
  Country: None (occurrence: None)
  Receive Date: 20080318
  Receipt Date: 20080307
  Transmission Date: 20080703
  Serious: Yes (Death)
  Sender: FDA-Public Use
  Company Number: 025114

PATIENT
  Age: 46 Year

DRUGS (2)
  1. CLONAZEPAM [Suspect]
     Dosage: UNK UNK ORAL
     Route: 048
  2. DOXEPIN HCL [Suspect]
     Dosage: UNK UNK ORAL
     Route: 048

REACTIONS (1)
  - DRUG TOXICITY [None]
